FAERS Safety Report 4631838-3 (Version None)
Quarter: 2005Q2

REPORT INFORMATION
  Report Type: 
  Country: None (occurrence: None)
  Receive Date: 20050411
  Receipt Date: 20050329
  Transmission Date: 20051028
  Serious: Yes (Hospitalization)
  Sender: FDA-Public Use
  Company Number: NSADSS2002012830

PATIENT
  Age: 68 Year
  Sex: Male

DRUGS (14)
  1. REMICADE [Suspect]
     Route: 042
  2. REMICADE [Suspect]
     Route: 042
  3. REMICADE [Suspect]
     Route: 042
  4. REMICADE [Suspect]
     Route: 042
  5. REMICADE [Suspect]
     Route: 042
  6. REMICADE [Suspect]
     Indication: RHEUMATOID ARTHRITIS
     Route: 042
  7. METHOTREXATE [Suspect]
     Indication: DRUG USE FOR UNKNOWN INDICATION
     Route: 049
  8. ENBREL [Suspect]
     Indication: RHEUMATOID ARTHRITIS
     Route: 058
  9. CORTANCYL [Suspect]
     Indication: DRUG USE FOR UNKNOWN INDICATION
     Route: 049
  10. MOPRAL [Concomitant]
     Route: 049
  11. KETOPROFEN [Concomitant]
     Route: 049
  12. SPECIAFOLDINE [Concomitant]
     Route: 049
  13. CACIT D3 [Concomitant]
     Route: 049
  14. CACIT D3 [Concomitant]
     Route: 049

REACTIONS (8)
  - COLON CANCER [None]
  - GAIT DISTURBANCE [None]
  - HEPATOMEGALY [None]
  - LYMPHOEDEMA [None]
  - METASTASES TO LIVER [None]
  - PARAESTHESIA [None]
  - VERTIGO [None]
  - VISUAL FIELD DEFECT [None]
